FAERS Safety Report 20534998 (Version 3)
Quarter: 2022Q2

REPORT INFORMATION
  Report Type: Report from Study
  Country: US (occurrence: US)
  Receive Date: 20220302
  Receipt Date: 20220427
  Transmission Date: 20220720
  Serious: Yes (Death, Other)
  Sender: FDA-Public Use
  Company Number: US-Vifor Pharma-VIT-2022-01289

PATIENT
  Sex: Male

DRUGS (2)
  1. VELPHORO [Suspect]
     Active Substance: SUCROFERRIC OXYHYDROXIDE
     Indication: End stage renal disease
     Route: 048
  2. RENVELA [Suspect]
     Active Substance: SEVELAMER CARBONATE
     Indication: Product used for unknown indication

REACTIONS (4)
  - Death [Fatal]
  - Toe amputation [Unknown]
  - Wound [Unknown]
  - COVID-19 [Unknown]
